FAERS Safety Report 8200285-X (Version None)
Quarter: 2012Q1

REPORT INFORMATION
  Report Type: 
  Country: None (occurrence: None)
  Receive Date: 20120312
  Receipt Date: 20120306
  Transmission Date: 20120608
  Serious: No
  Sender: FDA-Public Use
  Company Number: US-PFIZER INC-2012031761

PATIENT
  Sex: Male

DRUGS (4)
  1. CODEINE SULFATE [Suspect]
     Dosage: UNK
  2. ACCUPRIL [Suspect]
     Dosage: UNK
  3. ZOLOFT [Suspect]
     Dosage: UNK
  4. TRICOR [Suspect]
     Dosage: UNK

REACTIONS (1)
  - DRUG HYPERSENSITIVITY [None]
